FAERS Safety Report 17087187 (Version 2)
Quarter: 2020Q1

REPORT INFORMATION
  Report Type: Spontaneous
  Country: AU (occurrence: AU)
  Receive Date: 20191128
  Receipt Date: 20200113
  Transmission Date: 20200409
  Serious: Yes (Hospitalization, Other)
  Sender: FDA-Public Use
  Company Number: AU-AMGEN-AUSSP2019194717

PATIENT
  Age: 56 Year
  Sex: Male

DRUGS (6)
  1. DARBEPOETIN ALFA [Suspect]
     Active Substance: DARBEPOETIN ALFA
     Indication: PRODUCT USED FOR UNKNOWN INDICATION
     Dosage: 80 MICROGRAM, Q2WK
     Route: 058
  2. CALCITRIOL. [Concomitant]
     Active Substance: CALCITRIOL
     Dosage: 0.25 MICROGRAM, QD
  3. CINACALCET HCL [Suspect]
     Active Substance: CINACALCET HYDROCHLORIDE
     Indication: HYPERPARATHYROIDISM TERTIARY
     Dosage: 30 MILLIGRAM, BID
     Route: 065
     Dates: start: 2016, end: 2017
  4. ALENDRONATE [Concomitant]
     Active Substance: ALENDRONATE SODIUM
     Dosage: 70 MILLIGRAM, Q2WK
  5. CALCIUM CARBONATE. [Concomitant]
     Active Substance: CALCIUM CARBONATE
     Dosage: 500 MILLIGRAM, TID
  6. AMLODIPINE [Concomitant]
     Active Substance: AMLODIPINE BESYLATE
     Dosage: 10 MILLIGRAM, QD

REACTIONS (17)
  - Bone deformity [Unknown]
  - Muscular weakness [Unknown]
  - Aortic arteriosclerosis [Unknown]
  - Restrictive pulmonary disease [Unknown]
  - Breath sounds abnormal [Unknown]
  - Arteriosclerosis coronary artery [Unknown]
  - Diastema [Unknown]
  - Scoliosis [Unknown]
  - Atelectasis [Unknown]
  - Loss of personal independence in daily activities [Unknown]
  - Respiratory failure [Unknown]
  - Spinal compression fracture [Unknown]
  - Muscle atrophy [Unknown]
  - Kyphosis [Unknown]
  - Macrognathia [Unknown]
  - Drug ineffective [Unknown]
  - Respiratory acidosis [Unknown]

NARRATIVE: CASE EVENT DATE: 2018
